FAERS Safety Report 11385685 (Version 1)
Quarter: 2015Q3

REPORT INFORMATION
  Report Type: Spontaneous
  Country: IT (occurrence: IT)
  Receive Date: 20150817
  Receipt Date: 20150817
  Transmission Date: 20151125
  Serious: Yes (Life-Threatening, Hospitalization, Other)
  Sender: FDA-Public Use
  Company Number: IT-ROCHE-1612560

PATIENT
  Age: 74 Year
  Sex: Female
  Weight: 50 kg

DRUGS (8)
  1. COPEGUS [Interacting]
     Active Substance: RIBAVIRIN
     Indication: HEPATITIS C
  2. SOVALDI [Interacting]
     Active Substance: SOFOSBUVIR
     Indication: HEPATIC CIRRHOSIS
     Dosage: 400 MG - FILM-COATED TABLET
     Route: 048
     Dates: start: 20150525, end: 20150716
  3. TENORMIN [Concomitant]
     Active Substance: ATENOLOL
     Indication: HYPERTENSION
     Dosage: 100 MG TABLETS BLISTER PACK WITH 14 TABLETS
     Route: 048
  4. ZANTIPRIDE [Concomitant]
     Active Substance: ZOFENOPRIL
     Indication: HYPERTENSION
     Dosage: 30MG+12.5MG 28 TABLETS IN PVDC/PVC/AL BLISTER PACK
     Route: 048
  5. CARDURA [Concomitant]
     Active Substance: DOXAZOSIN MESYLATE
     Indication: HYPERTENSION
     Dosage: 4 MG TABLETS^ 20 TABLETS
     Route: 048
  6. COPEGUS [Suspect]
     Active Substance: RIBAVIRIN
     Indication: HEPATIC CIRRHOSIS
     Dosage: 200 MG 168 TABLETS IN A BOTTLE
     Route: 048
     Dates: start: 20150525, end: 20150709
  7. DEURSIL [Concomitant]
     Active Substance: URSODIOL
     Dosage: 450 MG 20 PROLONGED-RELEASE CAPSULES, HARD
     Route: 048
  8. SOVALDI [Interacting]
     Active Substance: SOFOSBUVIR
     Indication: HEPATITIS C

REACTIONS (3)
  - Acute myocardial infarction [Recovered/Resolved with Sequelae]
  - Anaemia [Unknown]
  - Drug interaction [Unknown]

NARRATIVE: CASE EVENT DATE: 20150709
